FAERS Safety Report 9841208 (Version 1)
Quarter: 2013Q4

REPORT INFORMATION
  Report Type: Spontaneous
  Country: US (occurrence: None)
  Receive Date: 20131212
  Receipt Date: 20131212
  Transmission Date: 20140711
  Serious: Yes (Hospitalization)
  Sender: FDA-Public Use
  Company Number: 20121221CINRY3772

PATIENT
  Age: 48 Year
  Sex: Female

DRUGS (3)
  1. CINRYZE (C1 ESTERASE INHIBITOR (HUMAN)) (500 UNIT, INJECTION FOR INFUSION) (C1 ESTERASE INHIBITOR (HUMAN)) [Suspect]
     Indication: HEREDITARY ANGIOEDEMA
     Dosage: 1500 UNIT, 2 IN 1 WK), INTRAVENOUS
     Route: 042
  2. CINRYZE (C1 ESTERASE INHIBITOR (HUMAN)) (500 UNIT, INJECTION FOR INFUSION) (C1 ESTERASE INHIBITOR (HUMAN)) [Suspect]
     Indication: PROPHYLAXIS
     Dosage: 1500 UNIT, 2 IN 1 WK), INTRAVENOUS
     Route: 042
  3. INFLUENZA VIRUS VACCINE NOS [Suspect]
     Indication: INFLUENZA IMMUNISATION
     Dosage: UNKNOWN, INJECTION
     Dates: start: 20121130

REACTIONS (4)
  - Hereditary angioedema [None]
  - Injection site swelling [None]
  - Therapy change [None]
  - Therapy change [None]
